FAERS Safety Report 23523019 (Version 1)
Quarter: 2024Q1

REPORT INFORMATION
  Report Type: Spontaneous
  Country: US (occurrence: None)
  Receive Date: 20240213
  Receipt Date: 20240213
  Transmission Date: 20240410
  Serious: Yes (Other)
  Sender: FDA-Public Use
  Company Number: None

PATIENT
  Age: 50 Year
  Sex: Male
  Weight: 90 kg

DRUGS (1)
  1. BUPRENORPHINE HYDROCHLORIDE AND NALOXONE HYDROCHLORIDE [Suspect]
     Active Substance: BUPRENORPHINE HYDROCHLORIDE\NALOXONE HYDROCHLORIDE
     Indication: Drug dependence
     Dosage: FREQUENCY : TWICE A DAY;?
     Route: 060

REACTIONS (8)
  - Swollen tongue [None]
  - Glossitis [None]
  - Withdrawal syndrome [None]
  - Chills [None]
  - Hyperhidrosis [None]
  - Diarrhoea [None]
  - Abdominal pain upper [None]
  - Unevaluable event [None]

NARRATIVE: CASE EVENT DATE: 20240106
